FAERS Safety Report 7611998-2 (Version None)
Quarter: 2011Q3

REPORT INFORMATION
  Report Type: 
  Country: None (occurrence: None)
  Receive Date: 20110715
  Receipt Date: 20110708
  Transmission Date: 20111222
  Serious: Yes (Hospitalization)
  Sender: FDA-Public Use
  Company Number: FR-ELI_LILLY_AND_COMPANY-FR201107002269

PATIENT
  Age: 47 Year
  Sex: Female

DRUGS (3)
  1. ALIMTA [Suspect]
     Indication: LUNG ADENOCARCINOMA METASTATIC
     Dosage: 500 MG, ON 10-DEC-2010, 30-DEC-2010, 27-JAN-2011.
     Route: 042
     Dates: start: 20101210
  2. CARBOPLATIN [Concomitant]
     Indication: LUNG ADENOCARCINOMA METASTATIC
     Dosage: UNK
     Route: 042
     Dates: start: 20100901, end: 20101201
  3. TAXOL [Concomitant]
     Indication: LUNG ADENOCARCINOMA METASTATIC
     Dosage: UNK
     Route: 042
     Dates: start: 20100901, end: 20101201

REACTIONS (1)
  - CARDIAC FAILURE [None]
